FAERS Safety Report 19595377 (Version 1)
Quarter: 2021Q3

REPORT INFORMATION
  Report Type: Spontaneous
  Country: US (occurrence: US)
  Receive Date: 20210722
  Receipt Date: 20210722
  Transmission Date: 20211014
  Serious: No
  Sender: FDA-Public Use
  Company Number: US-ANTARES PHARMA, INC.-2021-SPO-TX-0367

PATIENT

DRUGS (2)
  1. TRULICITY [Concomitant]
     Active Substance: DULAGLUTIDE
     Indication: DIABETES MELLITUS
  2. XYOSTED [Suspect]
     Active Substance: TESTOSTERONE ENANTHATE
     Indication: PRODUCT USED FOR UNKNOWN INDICATION
     Dosage: 100 MG/0.5ML, QWK
     Route: 058

REACTIONS (2)
  - Product dose omission issue [Unknown]
  - Accidental exposure to product [Unknown]
